FAERS Safety Report 4834794-8 (Version None)
Quarter: 2005Q4

REPORT INFORMATION
  Report Type: 
  Country: None (occurrence: None)
  Receive Date: 20051122
  Receipt Date: 20050930
  Transmission Date: 20060501
  Serious: Yes (Hospitalization, Other)
  Sender: FDA-Public Use
  Company Number: PHEH2005US10943

PATIENT
  Age: 49 Year
  Sex: Male
  Weight: 95.238 kg

DRUGS (3)
  1. CLOZARIL [Suspect]
     Dosage: UNK, UNK
  2. PAROXETINE MESILATE [Concomitant]
     Indication: DEPRESSION
     Dosage: 20 MG, QD
     Route: 048
  3. KLONOPIN [Concomitant]
     Indication: PARASOMNIA
     Dosage: 1 MG, QHS
     Route: 048

REACTIONS (4)
  - ABNORMAL BEHAVIOUR [None]
  - HYPERSOMNIA [None]
  - PSYCHOTIC DISORDER [None]
  - SEDATION [None]
